FAERS Safety Report 4767915-6 (Version None)
Quarter: 2005Q3

REPORT INFORMATION
  Report Type: 
  Country: None (occurrence: None)
  Receive Date: 20050912
  Receipt Date: 20050826
  Transmission Date: 20060218
  Serious: Yes (Death)
  Sender: FDA-Public Use
  Company Number: 2005BI016185

PATIENT
  Sex: Female

DRUGS (1)
  1. AVONEX [Suspect]
     Indication: PROGRESSIVE MULTIPLE SCLEROSIS
     Dosage: IM
     Route: 030

REACTIONS (1)
  - DEATH [None]
